FAERS Safety Report 19604281 (Version 5)
Quarter: 2021Q4

REPORT INFORMATION
  Report Type: Spontaneous
  Country: US (occurrence: US)
  Receive Date: 20210723
  Receipt Date: 20211228
  Transmission Date: 20220303
  Serious: Yes (Other)
  Sender: FDA-Public Use
  Company Number: US-PFIZER INC-2021664552

PATIENT
  Age: 71 Year
  Sex: Female

DRUGS (1)
  1. IBRANCE [Suspect]
     Active Substance: PALBOCICLIB
     Indication: Breast cancer female
     Dosage: 125 MG

REACTIONS (21)
  - Lower limb fracture [Unknown]
  - Fall [Unknown]
  - Pneumonia [Unknown]
  - Second primary malignancy [Unknown]
  - Lung neoplasm malignant [Unknown]
  - Alopecia [Unknown]
  - Fatigue [Unknown]
  - Decreased appetite [Unknown]
  - Pain in extremity [Unknown]
  - Arthritis [Unknown]
  - Gait disturbance [Unknown]
  - Sinusitis [Unknown]
  - Increased upper airway secretion [Unknown]
  - Sputum increased [Unknown]
  - Illness [Unknown]
  - Immune system disorder [Unknown]
  - Malaise [Unknown]
  - Asthenia [Unknown]
  - Feeding disorder [Unknown]
  - Sciatica [Unknown]
  - Nervous system disorder [Unknown]

NARRATIVE: CASE EVENT DATE: 20200101
